FAERS Safety Report 11996662 (Version 3)
Quarter: 2016Q2

REPORT INFORMATION
  Report Type: Report from Study
  Country: FR (occurrence: FR)
  Receive Date: 20160203
  Receipt Date: 20160407
  Transmission Date: 20160815
  Serious: Yes (Death, Hospitalization, Other)
  Sender: FDA-Public Use
  Company Number: FR-GILEAD-2016-0195927

PATIENT
  Age: 58 Year
  Sex: Male
  Weight: 80 kg

DRUGS (6)
  1. DACLATASVIR. [Suspect]
     Active Substance: DACLATASVIR
     Indication: HEPATITIS C
     Dosage: 60 MG, QD
     Route: 065
     Dates: start: 20150602, end: 20151209
  2. INSPRA [Concomitant]
     Active Substance: EPLERENONE
     Indication: POLYURIA
     Dosage: UNK
     Dates: start: 20120621
  3. REVATIO [Suspect]
     Active Substance: SILDENAFIL CITRATE
     Indication: PRODUCT USED FOR UNKNOWN INDICATION
     Dosage: 1 DF, TID
     Route: 065
     Dates: start: 20110620
  4. DELURSAN [Concomitant]
     Active Substance: URSODIOL
     Dosage: 1 DF, QD
     Dates: start: 20130307
  5. LASILIX                            /00032601/ [Concomitant]
     Active Substance: FUROSEMIDE
     Indication: POLYURIA
     Dosage: 1 DF, QD
     Dates: start: 20120621
  6. SOFOSBUVIR [Suspect]
     Active Substance: SOFOSBUVIR
     Indication: HEPATITIS C
     Dosage: 400 MG, QD
     Route: 065
     Dates: start: 20150602, end: 20151209

REACTIONS (1)
  - Gastric varices haemorrhage [Fatal]

NARRATIVE: CASE EVENT DATE: 20160115
